FAERS Safety Report 17059214 (Version 1)
Quarter: 2019Q4

REPORT INFORMATION
  Report Type: Spontaneous
  Country: US (occurrence: US)
  Receive Date: 20191119
  Receipt Date: 20191119
  Transmission Date: 20200122
  Serious: Yes (Life-Threatening, Disabling)
  Sender: FDA-Public Use
  Company Number: None

PATIENT
  Age: 72 Year
  Sex: Female
  Weight: 60.75 kg

DRUGS (2)
  1. LEVOTHYROXINE. [Suspect]
     Active Substance: LEVOTHYROXINE
  2. BIOTIN [Suspect]
     Active Substance: BIOTIN

REACTIONS (6)
  - Cardiac disorder [None]
  - Spinal disorder [None]
  - Palpitations [None]
  - Hyperthyroidism [None]
  - Blood test abnormal [None]
  - Product prescribing issue [None]

NARRATIVE: CASE EVENT DATE: 20181125
